FAERS Safety Report 9078720 (Version 1)
Quarter: 2013Q1

REPORT INFORMATION
  Report Type: Report from Study
  Country: US (occurrence: US)
  Receive Date: 20130130
  Receipt Date: 20130130
  Transmission Date: 20140127
  Serious: No
  Sender: FDA-Public Use
  Company Number: US-ABBOTT-12P-163-0976831-00

PATIENT
  Sex: Female
  Weight: 59.02 kg

DRUGS (2)
  1. HUMIRA [Suspect]
     Dates: start: 201010
  2. VITAMIN D [Concomitant]
     Indication: VITAMIN D DEFICIENCY

REACTIONS (2)
  - Drug effect decreased [Not Recovered/Not Resolved]
  - Arthralgia [Not Recovered/Not Resolved]
